FAERS Safety Report 6618153-3 (Version None)
Quarter: 2010Q1

REPORT INFORMATION
  Report Type: 
  Country: None (occurrence: None)
  Receive Date: 20100308
  Receipt Date: 20100224
  Transmission Date: 20100710
  Serious: Yes (Death)
  Sender: FDA-Public Use
  Company Number: JP-PFIZER INC-2010025131

PATIENT
  Age: 82 Year
  Sex: Female

DRUGS (1)
  1. UNASYN [Suspect]
     Dosage: 3G/DAY
     Route: 042
     Dates: start: 20100222, end: 20100222

REACTIONS (1)
  - ANAPHYLACTIC SHOCK [None]
